FAERS Safety Report 6335411-0 (Version None)
Quarter: 2009Q3

REPORT INFORMATION
  Report Type: 
  Country: None (occurrence: None)
  Receive Date: 20090831
  Receipt Date: 20090824
  Transmission Date: 20100115
  Serious: Yes (Hospitalization)
  Sender: FDA-Public Use
  Company Number: PHEH2009US09885

PATIENT
  Sex: Female

DRUGS (11)
  1. RECLAST [Suspect]
     Indication: OSTEOPOROSIS POSTMENOPAUSAL
     Dosage: UNK
     Dates: start: 20090731
  2. RECLAST [Suspect]
     Indication: DYSPHAGIA
  3. RECLAST [Suspect]
     Indication: MASTICATION DISORDER
  4. B12 ^RECIP^ [Concomitant]
  5. IRON [Concomitant]
  6. SYNTHROID [Concomitant]
     Indication: HYPOTHYROIDISM
     Dosage: 50 MCG
  7. PRAVASTATIN [Concomitant]
     Dosage: 20 MG, UNK
  8. ATENOLOL [Concomitant]
     Dosage: 12.5 MG, UNK
  9. VITAMIN D [Concomitant]
  10. VIACTIV                                 /USA/ [Concomitant]
  11. ASPIRIN [Concomitant]

REACTIONS (12)
  - BACK PAIN [None]
  - BODY TEMPERATURE INCREASED [None]
  - CEREBROVASCULAR ACCIDENT [None]
  - EPISTAXIS [None]
  - HEADACHE [None]
  - HYPERSENSITIVITY [None]
  - INFLUENZA LIKE ILLNESS [None]
  - JOINT SWELLING [None]
  - MOVEMENT DISORDER [None]
  - NECK PAIN [None]
  - PAIN [None]
  - SPEECH DISORDER [None]
